FAERS Safety Report 7363865-X (Version None)
Quarter: 2011Q1

REPORT INFORMATION
  Report Type: 
  Country: None (occurrence: None)
  Receive Date: 20110321
  Receipt Date: 20110314
  Transmission Date: 20110831
  Serious: Yes (Hospitalization)
  Sender: FDA-Public Use
  Company Number: FR-B.I. PHARMACEUTICALS,INC./RIDGEFIELD-2011-FF-00253FF

PATIENT
  Age: 70 Year
  Sex: Female

DRUGS (4)
  1. VOLTAREN [Suspect]
  2. NEXIUM [Concomitant]
  3. PRADAXA [Suspect]
     Indication: KNEE ARTHROPLASTY
     Dosage: 220 MG
     Route: 048
     Dates: start: 20110228, end: 20110311
  4. BI-PROFENID [Suspect]

REACTIONS (2)
  - LEUKOPENIA [None]
  - CHILLS [None]
